FAERS Safety Report 11676378 (Version 2)
Quarter: 2015Q4

REPORT INFORMATION
  Report Type: Spontaneous
  Country: US (occurrence: US)
  Receive Date: 20151027
  Receipt Date: 20151104
  Transmission Date: 20160304
  Serious: No
  Sender: FDA-Public Use
  Company Number: US-ELI_LILLY_AND_COMPANY-US201004008515

PATIENT
  Age: 72 Year
  Sex: Female

DRUGS (5)
  1. FORTEO [Suspect]
     Active Substance: TERIPARATIDE
     Indication: BONE FORMATION DECREASED
     Dosage: 20 UG, DAILY (1/D)
     Dates: start: 20100227
  2. CALCIUM [Concomitant]
     Active Substance: CALCIUM
  3. FORTEO [Suspect]
     Active Substance: TERIPARATIDE
     Dosage: 20 UG, QD
     Dates: end: 20100920
  4. VITAMIN D [Concomitant]
     Active Substance: CHOLECALCIFEROL
  5. ANALGESICS [Concomitant]
     Active Substance: UNSPECIFIED INGREDIENT
     Indication: PAIN

REACTIONS (9)
  - Bone disorder [Unknown]
  - Myalgia [Unknown]
  - Muscular weakness [Unknown]
  - Pain [Unknown]
  - Arthropathy [Unknown]
  - Arthralgia [Unknown]
  - Back pain [Unknown]
  - Intentional product misuse [Unknown]
  - Muscle spasms [Not Recovered/Not Resolved]

NARRATIVE: CASE EVENT DATE: 201004
